FAERS Safety Report 14566806 (Version 1)
Quarter: 2018Q1

REPORT INFORMATION
  Report Type: Spontaneous
  Country: US (occurrence: US)
  Receive Date: 20180223
  Receipt Date: 20180223
  Transmission Date: 20180509
  Serious: Yes (Other)
  Sender: FDA-Public Use
  Company Number: US-AMGEN-USASP2018019537

PATIENT
  Age: 58 Year
  Sex: Female
  Weight: 57.14 kg

DRUGS (8)
  1. XGEVA [Suspect]
     Active Substance: DENOSUMAB
     Indication: METASTASES TO BONE
     Dosage: 70 MG/ML, UNK (120MG/1.7ML)
     Route: 058
     Dates: start: 2018
  2. TAXOTERE [Suspect]
     Active Substance: DOCETAXEL
     Indication: BREAST CANCER METASTATIC
     Dosage: UNK
     Route: 065
  3. LOSARTAN AND HYDROCHLOROTHIAZIDE [Concomitant]
     Active Substance: HYDROCHLOROTHIAZIDE\LOSARTAN POTASSIUM
     Dosage: 100/12.5 MG
  4. DEXAMETHASONE. [Concomitant]
     Active Substance: DEXAMETHASONE
     Dosage: 4 MG, UNK
  5. METFORMIN ER [Concomitant]
     Active Substance: METFORMIN HYDROCHLORIDE
     Dosage: 500 MG, UNK
  6. PERJETA [Suspect]
     Active Substance: PERTUZUMAB
     Indication: BREAST CANCER METASTATIC
     Dosage: UNK
     Route: 065
  7. NEULASTA [Suspect]
     Active Substance: PEGFILGRASTIM
     Indication: PRODUCT USED FOR UNKNOWN INDICATION
     Dosage: 6 MG, UNK
     Route: 058
     Dates: start: 20180118
  8. HERCEPTIN [Suspect]
     Active Substance: TRASTUZUMAB
     Indication: BREAST CANCER METASTATIC
     Dosage: UNK
     Route: 065

REACTIONS (12)
  - Diarrhoea [Unknown]
  - Wrong technique in product usage process [Unknown]
  - Back pain [Recovered/Resolved]
  - Abnormal loss of weight [Unknown]
  - Microcytic anaemia [Unknown]
  - Hypercalcaemia [Recovering/Resolving]
  - Decreased appetite [Recovering/Resolving]
  - Accidental exposure to product [Unknown]
  - Acute kidney injury [Recovering/Resolving]
  - Breast cancer metastatic [Unknown]
  - Fatigue [Unknown]
  - Pallor [Not Recovered/Not Resolved]

NARRATIVE: CASE EVENT DATE: 2018
